FAERS Safety Report 5061438-5 (Version None)
Quarter: 2006Q3

REPORT INFORMATION
  Report Type: 
  Country: None (occurrence: None)
  Receive Date: 20060703
  Receipt Date: 20060410
  Transmission Date: 20061208
  Serious: No
  Sender: FDA-Public Use
  Company Number: 2006PV011827

PATIENT
  Age: 24 Year
  Sex: Female
  Weight: 81.6475 kg

DRUGS (7)
  1. SYMLIN [Suspect]
     Indication: DIABETES MELLITUS NON-INSULIN-DEPENDENT
     Dosage: 120 MCG; TID; SC
     Route: 058
     Dates: start: 20050908
  2. GLUCOPHAGE [Concomitant]
  3. HUMULIN N [Concomitant]
  4. LABETALOL HCL [Concomitant]
  5. MAXZIDE [Concomitant]
  6. PRONTONIX ^WYETH-AYERST^ [Concomitant]
  7. SEASONALE [Concomitant]

REACTIONS (2)
  - ALANINE AMINOTRANSFERASE INCREASED [None]
  - ASPARTATE AMINOTRANSFERASE INCREASED [None]
